FAERS Safety Report 21338722 (Version 2)
Quarter: 2022Q3

REPORT INFORMATION
  Report Type: Spontaneous
  Country: US (occurrence: US)
  Receive Date: 20220915
  Receipt Date: 20220923
  Transmission Date: 20221026
  Serious: Yes (Life-Threatening)
  Sender: FDA-Public Use
  Company Number: US-PFIZER INC-PV202200062523

PATIENT
  Sex: Female

DRUGS (1)
  1. DEPO-PROVERA [Suspect]
     Active Substance: MEDROXYPROGESTERONE ACETATE
     Indication: Contraception
     Dosage: UNK

REACTIONS (6)
  - Drug hypersensitivity [Unknown]
  - Dyspnoea [Unknown]
  - Joint stiffness [Unknown]
  - Stiff tongue [Unknown]
  - Musculoskeletal stiffness [Unknown]
  - Ocular hyperaemia [Unknown]
